FAERS Safety Report 17301547 (Version 1)
Quarter: 2020Q1

REPORT INFORMATION
  Report Type: Spontaneous
  Country: PT (occurrence: PT)
  Receive Date: 20200122
  Receipt Date: 20200122
  Transmission Date: 20200409
  Serious: Yes (Other)
  Sender: FDA-Public Use
  Company Number: PT-MYLANLABS-2020M1006324

PATIENT
  Age: 37 Year
  Sex: Female

DRUGS (1)
  1. AMLODIPINE BESILATE/VALSARTAN [Suspect]
     Active Substance: AMLODIPINE BESYLATE\VALSARTAN
     Indication: HYPERTENSION
     Dosage: UNK

REACTIONS (4)
  - Thrombotic microangiopathy [Unknown]
  - Retinopathy hypertensive [Unknown]
  - Drug ineffective [Unknown]
  - Macular degeneration [Unknown]
